FAERS Safety Report 16289044 (Version 1)
Quarter: 2019Q2

REPORT INFORMATION
  Report Type: Other
  Country: CA (occurrence: CA)
  Receive Date: 20190509
  Receipt Date: 20190509
  Transmission Date: 20190711
  Serious: Yes (Other)
  Sender: FDA-Public Use
  Company Number: CA-APOTEX-2019AP013352

PATIENT
  Age: 40 Year
  Sex: Female

DRUGS (1)
  1. TAMOXIFEN [Suspect]
     Active Substance: TAMOXIFEN
     Indication: BREAST CANCER FEMALE
     Dosage: 20 MG, UNK
     Route: 048

REACTIONS (7)
  - Platelet count decreased [Unknown]
  - Fatigue [Unknown]
  - Carpal tunnel syndrome [Unknown]
  - Muscular weakness [Unknown]
  - Myalgia [Unknown]
  - Red blood cell count decreased [Unknown]
  - Neutrophil count abnormal [Unknown]
